FAERS Safety Report 9304981 (Version 3)
Quarter: 2015Q2

REPORT INFORMATION
  Report Type: Spontaneous
  Country: US (occurrence: US)
  Receive Date: 20130523
  Receipt Date: 20150524
  Transmission Date: 20150821
  Serious: No
  Sender: FDA-Public Use
  Company Number: US-JNJFOC-20130506416

PATIENT
  Age: 52 Year
  Sex: Female
  Weight: 86.18 kg

DRUGS (1)
  1. DURAGESIC [Suspect]
     Active Substance: FENTANYL
     Indication: PAIN
     Route: 062
     Dates: start: 2011

REACTIONS (8)
  - Insomnia [Recovered/Resolved]
  - Drug ineffective [Not Recovered/Not Resolved]
  - Product quality issue [Unknown]
  - Application site reaction [Not Recovered/Not Resolved]
  - Application site dryness [Recovered/Resolved]
  - Wrong technique in drug usage process [Recovered/Resolved]
  - Product quality issue [Recovered/Resolved]
  - Drug dose omission [Not Recovered/Not Resolved]

NARRATIVE: CASE EVENT DATE: 2011
